FAERS Safety Report 6373749-1 (Version None)
Quarter: 2009Q3

REPORT INFORMATION
  Report Type: 
  Country: None (occurrence: None)
  Receive Date: 20090924
  Receipt Date: 20090424
  Transmission Date: 20100115
  Serious: Yes (Hospitalization)
  Sender: FDA-Public Use
  Company Number: US-ASTRAZENECA-2009UW10242

PATIENT
  Age: 81 Year
  Sex: Male
  Weight: 68.9 kg

DRUGS (14)
  1. SEROQUEL [Suspect]
     Indication: CONFUSIONAL STATE
     Route: 048
     Dates: start: 20090101, end: 20090116
  2. SEROQUEL [Suspect]
     Indication: AGGRESSION
     Route: 048
     Dates: start: 20090101, end: 20090116
  3. SEROQUEL [Suspect]
     Route: 048
     Dates: start: 20090101, end: 20090116
  4. SEROQUEL [Suspect]
     Route: 048
     Dates: start: 20090101, end: 20090116
  5. SEROQUEL [Suspect]
     Route: 048
     Dates: start: 20090117, end: 20090120
  6. SEROQUEL [Suspect]
     Route: 048
     Dates: start: 20090117, end: 20090120
  7. SEROQUEL [Suspect]
     Route: 048
     Dates: start: 20090117, end: 20090120
  8. SEROQUEL [Suspect]
     Route: 048
     Dates: start: 20090117, end: 20090120
  9. XANAX [Suspect]
     Indication: CONFUSIONAL STATE
     Dosage: 25 MG TID, PRN
     Route: 048
     Dates: start: 20090116, end: 20090120
  10. XANAX [Suspect]
     Indication: AGGRESSION
     Dosage: 25 MG TID, PRN
     Route: 048
     Dates: start: 20090116, end: 20090120
  11. NAMENDA [Suspect]
     Route: 048
     Dates: start: 20090101
  12. MEMANTINE HCL [Suspect]
     Indication: DEMENTIA ALZHEIMER'S TYPE
     Route: 048
     Dates: start: 20080207, end: 20090101
  13. EXELON [Concomitant]
     Indication: DEMENTIA ALZHEIMER'S TYPE
     Route: 062
     Dates: start: 20090101, end: 20090101
  14. EXELON [Concomitant]
     Dates: start: 20090101

REACTIONS (4)
  - AGGRESSION [None]
  - CONFUSIONAL STATE [None]
  - DELIRIUM [None]
  - DRY SKIN [None]
